FAERS Safety Report 10563396 (Version 5)
Quarter: 2015Q1

REPORT INFORMATION
  Report Type: Report from Study
  Country: US (occurrence: US)
  Receive Date: 20141104
  Receipt Date: 20150305
  Transmission Date: 20150720
  Serious: No
  Sender: FDA-Public Use
  Company Number: US-SA-2014SA007644

PATIENT
  Age: 67 Year
  Sex: Female
  Weight: 75.74 kg

DRUGS (5)
  1. AUBAGIO [Suspect]
     Active Substance: TERIFLUNOMIDE
     Indication: MULTIPLE SCLEROSIS
     Route: 048
     Dates: start: 20131231
  2. AUBAGIO [Suspect]
     Active Substance: TERIFLUNOMIDE
     Indication: MULTIPLE SCLEROSIS
     Route: 048
  3. TEGRETOL [Concomitant]
     Active Substance: CARBAMAZEPINE
     Indication: FACIAL NEURALGIA
  4. PREDNISONE. [Concomitant]
     Active Substance: PREDNISONE
  5. GABAPENTIN. [Concomitant]
     Active Substance: GABAPENTIN
     Indication: FACIAL NEURALGIA

REACTIONS (12)
  - Activities of daily living impaired [Unknown]
  - Muscle spasms [Unknown]
  - Weight decreased [Unknown]
  - Plague [Unknown]
  - Diarrhoea [Recovered/Resolved]
  - Cardiac disorder [Unknown]
  - Trismus [Unknown]
  - Pain in jaw [Unknown]
  - Viral infection [Unknown]
  - Product quality issue [Unknown]
  - Tooth disorder [Unknown]
  - Drug dose omission [Unknown]

NARRATIVE: CASE EVENT DATE: 201312
